FAERS Safety Report 8459008-1 (Version None)
Quarter: 2012Q2

REPORT INFORMATION
  Report Type: 
  Country: None (occurrence: None)
  Receive Date: 20120622
  Receipt Date: 20120613
  Transmission Date: 20120825
  Serious: Yes (Hospitalization, Disabling)
  Sender: FDA-Public Use
  Company Number: CA-ROCHE-1077406

PATIENT
  Age: 88 Year

DRUGS (7)
  1. ASPIRIN [Concomitant]
  2. LAMISIL [Concomitant]
  3. LUCENTIS [Suspect]
     Indication: MACULAR DEGENERATION
     Route: 050
     Dates: start: 20120430
  4. BISOPROLOL FUMARATE [Concomitant]
  5. NICARDIPINE HCL [Concomitant]
  6. CYCLOPENTOLATE HYDROCHLORIDE [Concomitant]
  7. AMLODIPINE [Concomitant]

REACTIONS (5)
  - DIABETES MELLITUS [None]
  - ATRIAL FIBRILLATION [None]
  - CEREBROVASCULAR ACCIDENT [None]
  - RENAL FAILURE [None]
  - HYPOTHYROIDISM [None]
